FAERS Safety Report 5382604-5 (Version None)
Quarter: 2007Q3

REPORT INFORMATION
  Report Type: 
  Country: None (occurrence: None)
  Receive Date: 20070710
  Receipt Date: 20070629
  Transmission Date: 20080115
  Serious: Yes (Other)
  Sender: FDA-Public Use
  Company Number: PHBS2007JP10498

PATIENT
  Age: 1 Day

DRUGS (1)
  1. SANDOSTATIN LAR [Suspect]
     Dosage: MATERNAL DOSE: 30 MG/MONTH
     Route: 064

REACTIONS (3)
  - DRUG EXPOSURE DURING PREGNANCY [None]
  - HYPOGLYCAEMIA NEONATAL [None]
  - NORMAL NEWBORN [None]
